FAERS Safety Report 15828554 (Version 1)
Quarter: 2019Q1

REPORT INFORMATION
  Report Type: Spontaneous
  Country: US (occurrence: US)
  Receive Date: 20190115
  Receipt Date: 20190115
  Transmission Date: 20190417
  Serious: No
  Sender: FDA-Public Use
  Company Number: US-ALLERGAN-1773813US

PATIENT
  Sex: Female

DRUGS (3)
  1. XALATAN [Concomitant]
     Active Substance: LATANOPROST
     Indication: DRY EYE
     Dosage: UNK
  2. RESTASIS [Suspect]
     Active Substance: CYCLOSPORINE
     Indication: DRY EYE
     Dosage: UNK
     Route: 047
     Dates: end: 20171220
  3. TRAVATAN [Concomitant]
     Active Substance: TRAVOPROST
     Indication: DRY EYE
     Dosage: UNK

REACTIONS (3)
  - Product dropper issue [Unknown]
  - Accidental exposure to product [Unknown]
  - Product dose omission [Unknown]
